FAERS Safety Report 20135944 (Version 1)
Quarter: 2021Q4

REPORT INFORMATION
  Report Type: Spontaneous
  Country: RU (occurrence: RU)
  Receive Date: 20211201
  Receipt Date: 20211201
  Transmission Date: 20220304
  Serious: Yes (Hospitalization)
  Sender: FDA-Public Use
  Company Number: RU-ALXN-A202113079

PATIENT
  Weight: 10.6 kg

DRUGS (1)
  1. STRENSIQ [Suspect]
     Active Substance: ASFOTASE ALFA
     Indication: Hypophosphatasia
     Dosage: 2 MG/KG, TIW (28 MG - 0,7 ML)
     Route: 065
     Dates: start: 20210201

REACTIONS (1)
  - Rotavirus infection [Not Recovered/Not Resolved]

NARRATIVE: CASE EVENT DATE: 20211123
